FAERS Safety Report 14308051 (Version 1)
Quarter: 2017Q4

REPORT INFORMATION
  Report Type: Spontaneous
  Country: US (occurrence: US)
  Receive Date: 20171219
  Receipt Date: 20171219
  Transmission Date: 20180321
  Serious: No
  Sender: FDA-Public Use
  Company Number: None

PATIENT
  Age: 43 Year
  Sex: Female

DRUGS (1)
  1. HUMIRA [Suspect]
     Active Substance: ADALIMUMAB
     Indication: RHEUMATOID ARTHRITIS
     Dosage: 40 MG/0.8 ML Q2 WKS SC
     Route: 058
     Dates: start: 20170901

REACTIONS (2)
  - Upper respiratory tract infection [None]
  - Therapy cessation [None]

NARRATIVE: CASE EVENT DATE: 20171103
